FAERS Safety Report 15367075 (Version 2)
Quarter: 2018Q3

REPORT INFORMATION
  Report Type: Report from Study
  Country: FR (occurrence: FR)
  Receive Date: 20180910
  Receipt Date: 20180928
  Transmission Date: 20181010
  Serious: Yes (Other)
  Sender: FDA-Public Use
  Company Number: FR-ASTELLAS-2018US039471

PATIENT
  Sex: Female
  Weight: 55 kg

DRUGS (2)
  1. TACROLIMUS. [Suspect]
     Active Substance: TACROLIMUS
     Indication: RENAL TRANSPLANT
     Route: 048
     Dates: start: 20170720, end: 20180412
  2. TACROLIMUS. [Suspect]
     Active Substance: TACROLIMUS
     Dosage: REDUCED DOSE, UNKNOWN FREQ.
     Route: 065

REACTIONS (1)
  - Vascular hyalinosis [Not Recovered/Not Resolved]

NARRATIVE: CASE EVENT DATE: 20180412
